FAERS Safety Report 20109232 (Version 1)
Quarter: 2021Q4

REPORT INFORMATION
  Report Type: Spontaneous
  Country: US (occurrence: US)
  Receive Date: 20211124
  Receipt Date: 20211124
  Transmission Date: 20220303
  Serious: Yes (Other)
  Sender: FDA-Public Use
  Company Number: US-GLAXOSMITHKLINE-US2021GSK238776

PATIENT
  Sex: Female

DRUGS (8)
  1. ZANTAC [Suspect]
     Active Substance: RANITIDINE HYDROCHLORIDE
     Indication: Gastrooesophageal reflux disease
     Dosage: 150 MG, WE
     Route: 065
     Dates: start: 201210, end: 201802
  2. ZANTAC [Suspect]
     Active Substance: RANITIDINE HYDROCHLORIDE
     Indication: Reflux laryngitis
  3. ZANTAC [Suspect]
     Active Substance: RANITIDINE HYDROCHLORIDE
     Indication: Gastrooesophageal reflux disease
     Dosage: 150 MG, WE
     Route: 065
     Dates: start: 201210, end: 201802
  4. ZANTAC [Suspect]
     Active Substance: RANITIDINE HYDROCHLORIDE
     Indication: Reflux laryngitis
  5. RANITIDINE [Suspect]
     Active Substance: RANITIDINE
     Indication: Gastrooesophageal reflux disease
     Dosage: 150 MG, WE
     Route: 065
     Dates: start: 201210, end: 201802
  6. RANITIDINE [Suspect]
     Active Substance: RANITIDINE
     Indication: Reflux laryngitis
  7. RANITIDINE [Suspect]
     Active Substance: RANITIDINE
     Indication: Gastrooesophageal reflux disease
     Dosage: 150 MG, WE
     Route: 065
     Dates: start: 201210, end: 201802
  8. RANITIDINE [Suspect]
     Active Substance: RANITIDINE
     Indication: Reflux laryngitis

REACTIONS (1)
  - Prostate cancer [Unknown]
